FAERS Safety Report 9704670 (Version 3)
Quarter: 2014Q3

REPORT INFORMATION
  Report Type: Report from Study
  Country: GB (occurrence: GB)
  Receive Date: 20131122
  Receipt Date: 20140715
  Transmission Date: 20150326
  Serious: Yes (Death, Other)
  Sender: FDA-Public Use
  Company Number: GB-ROCHE-1306758

PATIENT
  Age: 52 Year
  Sex: Female

DRUGS (4)
  1. CAPECITABINE [Suspect]
     Active Substance: CAPECITABINE
     Indication: PRODUCT USED FOR UNKNOWN INDICATION
     Route: 065
  2. AVASTIN [Suspect]
     Active Substance: BEVACIZUMAB
     Indication: BREAST CANCER METASTATIC
     Route: 065
  3. VINORELBINE [Suspect]
     Active Substance: VINORELBINE\VINORELBINE TARTRATE
     Indication: PRODUCT USED FOR UNKNOWN INDICATION
     Route: 065
  4. PACLITAXEL. [Suspect]
     Active Substance: PACLITAXEL
     Indication: BREAST CANCER METASTATIC
     Route: 065

REACTIONS (13)
  - Lung infiltration [Recovered/Resolved]
  - Epistaxis [Unknown]
  - Nausea [Unknown]
  - Neuropathy peripheral [Unknown]
  - Breast pain [Unknown]
  - Lymphadenopathy [Unknown]
  - Nasal congestion [Unknown]
  - Mucosal inflammation [Unknown]
  - Death [Fatal]
  - Disease progression [Not Recovered/Not Resolved]
  - Leukopenia [Recovered/Resolved]
  - Tooth abscess [Unknown]
  - Neutropenia [Recovered/Resolved]
